FAERS Safety Report 5256261-2 (Version None)
Quarter: 2007Q1

REPORT INFORMATION
  Report Type: 
  Country: None (occurrence: None)
  Receive Date: 20070302
  Receipt Date: 20070221
  Transmission Date: 20070707
  Serious: Yes (Hospitalization, Other)
  Sender: FDA-Public Use
  Company Number: 163-21880-07010457

PATIENT
  Age: 80 Year
  Sex: Female

DRUGS (7)
  1. REVLIMID [Suspect]
     Indication: MULTIPLE MYELOMA
     Dosage: 25-15 MG, QD, D 1-21, ORAL
     Route: 048
     Dates: start: 20060927, end: 20070105
  2. DEXAMETHASONE TAB [Suspect]
     Indication: MULTIPLE MYELOMA
  3. LASIX [Concomitant]
  4. NTG (GLYCERYL TRINITRATE) [Concomitant]
  5. LISINOPRIL [Concomitant]
  6. METOPROLOL TARTRATE [Concomitant]
  7. NOVOLIN N [Concomitant]

REACTIONS (10)
  - BIOPSY BONE MARROW ABNORMAL [None]
  - CARDIAC FAILURE CONGESTIVE [None]
  - CARDIOGENIC SHOCK [None]
  - HYPERPLASIA [None]
  - HYPOVOLAEMIA [None]
  - MYOCARDIAL INFARCTION [None]
  - NO THERAPEUTIC RESPONSE [None]
  - PANCYTOPENIA [None]
  - PULMONARY OEDEMA [None]
  - RENAL FAILURE [None]
